FAERS Safety Report 7530465-8 (Version None)
Quarter: 2011Q2

REPORT INFORMATION
  Report Type: 
  Country: None (occurrence: None)
  Receive Date: 20110607
  Receipt Date: 20110510
  Transmission Date: 20111010
  Serious: Yes (Other)
  Sender: FDA-Public Use
  Company Number: US-BAYER-2011-041555

PATIENT
  Sex: Female

DRUGS (1)
  1. ALEVE [Suspect]
     Route: 048

REACTIONS (2)
  - URTICARIA [None]
  - PRURITUS [None]
